FAERS Safety Report 6343390-5 (Version None)
Quarter: 2009Q3

REPORT INFORMATION
  Report Type: 
  Country: None (occurrence: None)
  Receive Date: 20090908
  Receipt Date: 20090831
  Transmission Date: 20100115
  Serious: Yes (Hospitalization)
  Sender: FDA-Public Use
  Company Number: PHHO2009IL09842

PATIENT
  Sex: Female

DRUGS (5)
  1. FEMARA [Suspect]
     Dosage: 2.5 MG DAILY
     Dates: start: 20090623
  2. FEMARA [Suspect]
     Dosage: EVERY 6 MONTHS
  3. ZOLEDRONIC ACID [Suspect]
     Indication: RESORPTION BONE INCREASED
     Dosage: 4 MG
     Route: 042
     Dates: start: 20090714
  4. VITAMIN D [Concomitant]
  5. CALCIUM [Concomitant]

REACTIONS (7)
  - DIPLOPIA [None]
  - EYE IRRITATION [None]
  - EYE PRURITUS [None]
  - EYELID PTOSIS [None]
  - IIIRD NERVE PARALYSIS [None]
  - PHOTOPSIA [None]
  - PYREXIA [None]
